FAERS Safety Report 13009977 (Version 1)
Quarter: 2016Q4

REPORT INFORMATION
  Report Type: Report from Study
  Country: JP (occurrence: JP)
  Receive Date: 20161208
  Receipt Date: 20161208
  Transmission Date: 20170207
  Serious: Yes (Death)
  Sender: FDA-Public Use
  Company Number: JP-INCYTE CORPORATION-2015IN004091

PATIENT
  Age: 47 Year
  Sex: Male

DRUGS (1)
  1. JAKAVI [Suspect]
     Active Substance: RUXOLITINIB
     Indication: PRIMARY MYELOFIBROSIS
     Dosage: 5 MG, BID
     Route: 048
     Dates: start: 20140902

REACTIONS (3)
  - White blood cell count decreased [Not Recovered/Not Resolved]
  - Pneumonia [Fatal]
  - Diffuse alopecia [Unknown]

NARRATIVE: CASE EVENT DATE: 20141028
